FAERS Safety Report 19100864 (Version 1)
Quarter: 2021Q2

REPORT INFORMATION
  Report Type: Spontaneous
  Country: CN (occurrence: CN)
  Receive Date: 20210407
  Receipt Date: 20210407
  Transmission Date: 20210717
  Serious: Yes (Life-Threatening, Other)
  Sender: FDA-Public Use
  Company Number: CN-ASTRAZENECA-2021A257813

PATIENT
  Age: 67 Year
  Sex: Male

DRUGS (4)
  1. TERBUTALINE SULPHATE [Suspect]
     Active Substance: TERBUTALINE SULFATE
     Indication: DYSPNOEA
     Route: 055
     Dates: start: 20210330, end: 20210330
  2. BUDESONIDE SUSPENSION [Suspect]
     Active Substance: BUDESONIDE
     Indication: DYSPNOEA
     Route: 055
     Dates: start: 20210330, end: 20210330
  3. DIPROPHYLLINE [Concomitant]
     Active Substance: DYPHYLLINE
     Indication: DYSPNOEA
     Route: 042
     Dates: start: 20210322, end: 20210401
  4. IPRATROPIUM BROMIDE. [Suspect]
     Active Substance: IPRATROPIUM BROMIDE
     Indication: DYSPNOEA
     Route: 055
     Dates: start: 20210330, end: 20210330

REACTIONS (4)
  - Palpitations [Recovering/Resolving]
  - Dyspnoea [Recovering/Resolving]
  - Tremor [Recovering/Resolving]
  - Breath sounds abnormal [Recovering/Resolving]

NARRATIVE: CASE EVENT DATE: 20210330
